FAERS Safety Report 7363159-2 (Version None)
Quarter: 2011Q1

REPORT INFORMATION
  Report Type: 
  Country: None (occurrence: None)
  Receive Date: 20110321
  Receipt Date: 20091130
  Transmission Date: 20110831
  Serious: Yes (Hospitalization, Other)
  Sender: FDA-Public Use
  Company Number: US-BAYER-200941261NA

PATIENT
  Sex: Male
  Weight: 104.31 kg

DRUGS (7)
  1. VISIPAQUE [IODINE,IODIXANOL] [Concomitant]
     Dosage: 340 ML, UNK
     Dates: start: 20060126
  2. PLAVIX [Concomitant]
     Dosage: 75 MG, QD
     Dates: start: 20060101
  3. TRASYLOL [Suspect]
     Indication: CORONARY ARTERY BYPASS
     Dosage: UNK
     Route: 042
     Dates: start: 20071223
  4. VYTORIN [Concomitant]
     Dosage: UNK
     Dates: start: 19940101
  5. OLMESARTAN MEDOXOMIL [Concomitant]
     Dosage: 40 MG, QD
     Dates: start: 20060101
  6. ACETYLSALICYLIC ACID SRT [Concomitant]
     Dosage: 81 MG, QD
     Dates: start: 19980101
  7. SIMVASTATIN [Concomitant]
     Dosage: 40 MG HS
     Dates: start: 19940101

REACTIONS (9)
  - EMOTIONAL DISTRESS [None]
  - ANXIETY [None]
  - CEREBROVASCULAR ACCIDENT [None]
  - STRESS [None]
  - UNEVALUABLE EVENT [None]
  - FEAR [None]
  - INJURY [None]
  - PAIN [None]
  - ANHEDONIA [None]
